FAERS Safety Report 26143617 (Version 2)
Quarter: 2025Q4

REPORT INFORMATION
  Report Type: Spontaneous
  Country: GB (occurrence: GB)
  Receive Date: 20251211
  Receipt Date: 20251219
  Transmission Date: 20260117
  Serious: Yes (Other)
  Sender: TEVA
  Company Number: GB-TEVA-VS-3400340

PATIENT
  Age: 27 Year
  Sex: Male

DRUGS (3)
  1. TESTOSTERONE [Suspect]
     Active Substance: TESTOSTERONE
     Indication: Muscle building therapy
     Route: 065
  2. MIRVASO [Suspect]
     Active Substance: BRIMONIDINE TARTRATE
     Indication: Rosacea
     Route: 061
  3. ELOCON [Suspect]
     Active Substance: MOMETASONE FUROATE
     Indication: Steroid therapy
     Route: 061

REACTIONS (4)
  - Drug abuse [Recovered/Resolved]
  - Dermatitis contact [Recovered/Resolved]
  - Rosacea [Recovering/Resolving]
  - Liver function test abnormal [Recovered/Resolved]
